FAERS Safety Report 14585331 (Version 1)
Quarter: 2018Q1

REPORT INFORMATION
  Report Type: Spontaneous
  Country: US (occurrence: US)
  Receive Date: 20180301
  Receipt Date: 20180301
  Transmission Date: 20180509
  Serious: Yes (Hospitalization)
  Sender: FDA-Public Use
  Company Number: US-ROCHE-2076937

PATIENT
  Age: 67 Year
  Sex: Female

DRUGS (2)
  1. TAMIFLU [Suspect]
     Active Substance: OSELTAMIVIR PHOSPHATE
     Indication: INFLUENZA
     Route: 065
  2. ZANAMIVIR [Concomitant]
     Active Substance: ZANAMIVIR

REACTIONS (2)
  - Pneumonia bacterial [Unknown]
  - Sepsis [Unknown]
